FAERS Safety Report 16148132 (Version 5)
Quarter: 2019Q3

REPORT INFORMATION
  Report Type: Spontaneous
  Country: US (occurrence: US)
  Receive Date: 20190402
  Receipt Date: 20190722
  Transmission Date: 20191004
  Serious: Yes (Hospitalization)
  Sender: FDA-Public Use
  Company Number: US-PFIZER INC-2019128401

PATIENT
  Age: 73 Year
  Sex: Female
  Weight: 57 kg

DRUGS (10)
  1. INSPRA [Suspect]
     Active Substance: EPLERENONE
     Dosage: 50 MG, 2X/DAY
     Dates: start: 2018
  2. PREMARIN [Concomitant]
     Active Substance: ESTROGENS, CONJUGATED
     Indication: BLADDER PROLAPSE
     Dosage: UNK (0.600 SOMETHING APPROXIMATELY ADMINISTERED 2-3 TIMES WEEKLY)
     Dates: start: 2017
  3. INSPRA [Suspect]
     Active Substance: EPLERENONE
     Dosage: 25 MG, 2X/DAY
     Dates: start: 2008
  4. LABETALOL [Concomitant]
     Active Substance: LABETALOL\LABETALOL HYDROCHLORIDE
     Indication: HYPERTENSION
     Dosage: UNK, DAILY (1/2 TABLET TAKEN BY MOUTH IN THE MORNING AND 1 TABLET TAKEN BY MOUTH IN THE EVENING)
     Route: 048
     Dates: start: 2016
  5. AMLODIPINE [Concomitant]
     Active Substance: AMLODIPINE BESYLATE
     Indication: HYPERTENSION
     Dosage: UNK, DAILY, (1/2 TABLET TAKEN BY MOUTH IN THE MORNING AND 1/2 TABLET TAKEN BY MOUTH IN THE EVEN)
     Route: 048
     Dates: start: 2008
  6. IRBESARTAN. [Concomitant]
     Active Substance: IRBESARTAN
     Indication: HYPERTENSION
     Dosage: 300 MG, 1X/DAY
     Route: 048
     Dates: start: 2017
  7. IRBESARTAN. [Concomitant]
     Active Substance: IRBESARTAN
     Dosage: UNK
     Dates: start: 2018
  8. INSPRA [Suspect]
     Active Substance: EPLERENONE
     Dosage: 50 MG, 2X/DAY
     Dates: start: 2019, end: 2019
  9. PREMARIN [Concomitant]
     Active Substance: ESTROGENS, CONJUGATED
     Dosage: UNK
     Dates: start: 2018
  10. INSPRA [Suspect]
     Active Substance: EPLERENONE
     Indication: HYPERTENSION
     Dosage: 25 MG, 2X/DAY
     Route: 048
     Dates: start: 20190329, end: 2019

REACTIONS (2)
  - Muscle spasms [Recovered/Resolved]
  - Drug ineffective [Unknown]

NARRATIVE: CASE EVENT DATE: 2018
